FAERS Safety Report 8355805-1 (Version None)
Quarter: 2012Q2

REPORT INFORMATION
  Report Type: 
  Country: None (occurrence: None)
  Receive Date: 20120514
  Receipt Date: 20120510
  Transmission Date: 20120825
  Serious: No
  Sender: FDA-Public Use
  Company Number: US-PFIZER INC-2012114980

PATIENT
  Sex: Male
  Weight: 68.027 kg

DRUGS (13)
  1. CHANTIX [Suspect]
     Dosage: TWO 0.5MG TABLETS TOGETHER TWO TIMES A DAY
     Route: 048
     Dates: start: 20120101
  2. VITAMIN B-12 [Concomitant]
     Dosage: 5000 UG, 1X/DAY
  3. CHANTIX [Suspect]
     Dosage: TWO 0.5MG TABLETS TOGETHER AT NIGHT
     Route: 048
     Dates: start: 20120401, end: 20120401
  4. CHANTIX [Suspect]
     Dosage: TWO 0.5MG TABLETS TOGETHER AT NIGHT AND 0.5MG IN THE MORNING
     Route: 048
     Dates: start: 20120401, end: 20120101
  5. TRICOR [Concomitant]
     Dosage: 145 MG, 1X/DAY
  6. CHANTIX [Suspect]
     Dosage: 1 MG, 2X/DAY
     Route: 048
  7. ASCORBIC ACID [Concomitant]
     Dosage: 500 MG, UNK
  8. MAGNESIUM [Concomitant]
     Dosage: 250MG, UNK
  9. FLOMAX [Concomitant]
     Dosage: 0.4 MG, 1X/DAY
  10. FOLIC ACID [Concomitant]
     Dosage: 1 MG, 1X/DAY
  11. CHANTIX [Suspect]
     Indication: SMOKING CESSATION THERAPY
     Dosage: 0.5 MG, 1X/DAY
     Route: 048
  12. CHANTIX [Suspect]
     Dosage: 0.5 MG, 1X/DAY
     Route: 048
     Dates: start: 20120413, end: 20120401
  13. VITAMIN D [Concomitant]
     Dosage: 2000 UNITS, 1X/DAY

REACTIONS (2)
  - RED BLOOD CELL COUNT DECREASED [None]
  - NAUSEA [None]
